FAERS Safety Report 8595154-X (Version None)
Quarter: 2012Q3

REPORT INFORMATION
  Report Type: 
  Country: None (occurrence: None)
  Receive Date: 20120815
  Receipt Date: 20120801
  Transmission Date: 20120928
  Serious: Yes (Life-Threatening, Hospitalization)
  Sender: FDA-Public Use
  Company Number: JP-SANOFI-AVENTIS-2011SA002123

PATIENT
  Age: 47 Year
  Sex: Female
  Weight: 45 kg

DRUGS (6)
  1. LANTUS [Suspect]
     Indication: SUICIDE ATTEMPT
     Route: 065
     Dates: start: 19990101, end: 20110101
  2. SERTRALINE HYDROCHLORIDE [Concomitant]
     Dates: start: 20110110, end: 20110110
  3. LANTUS [Suspect]
     Route: 065
     Dates: start: 19990101, end: 20110101
  4. LANTUS [Suspect]
     Dosage: ADMINISTERED ONCE, DURATION UNKNOWN DOSE:600 UNIT(S)
     Route: 058
     Dates: start: 20110111, end: 20110111
  5. ALPRAZOLAM [Concomitant]
     Dates: start: 20110110, end: 20110110
  6. LANTUS [Suspect]
     Dosage: ADMINISTERED ONCE, DURATION UNKNOWN DOSE:600 UNIT(S)
     Route: 058
     Dates: start: 20110111, end: 20110111

REACTIONS (6)
  - BODY TEMPERATURE DECREASED [None]
  - SUICIDE ATTEMPT [None]
  - HYPOGLYCAEMIC ENCEPHALOPATHY [None]
  - INTENTIONAL OVERDOSE [None]
  - HYPOGLYCAEMIA [None]
  - LOSS OF CONSCIOUSNESS [None]
